FAERS Safety Report 9747540 (Version 1)
Quarter: 2013Q4

REPORT INFORMATION
  Report Type: Spontaneous
  Country: US (occurrence: None)
  Receive Date: 20131211
  Receipt Date: 20131211
  Transmission Date: 20140711
  Serious: No
  Sender: FDA-Public Use
  Company Number: None

PATIENT
  Age: 49 Year
  Sex: Female
  Weight: 108.86 kg

DRUGS (2)
  1. HIZENTRA [Suspect]
     Indication: IMMUNODEFICIENCY COMMON VARIABLE
     Dosage: 2 VIALS (8 GRAMS), TWICE WEEKLY, GIVEN INTO/UNDER THE SKIN
     Dates: start: 20131202, end: 20131209
  2. HIZENTRA [Suspect]
     Indication: IMMUNODEFICIENCY COMMON VARIABLE
     Dosage: 1 VIAL, TWICE WEEKLY, GIVEN INTO/ UNDER THE SKIN
     Dates: start: 20131202, end: 20131209

REACTIONS (3)
  - Infusion site reaction [None]
  - Infusion site erythema [None]
  - Infusion site pain [None]
